FAERS Safety Report 9127193 (Version 1)
Quarter: 2013Q1

REPORT INFORMATION
  Report Type: Spontaneous
  Country: US (occurrence: US)
  Receive Date: 20130125
  Receipt Date: 20130125
  Transmission Date: 20140127
  Serious: Yes (Death, Hospitalization)
  Sender: FDA-Public Use
  Company Number: US-MYLANLABS-2013S1001119

PATIENT
  Age: 55 Year
  Sex: Male

DRUGS (11)
  1. PAROXETINE HYDROCHLORIDE [Suspect]
     Indication: DEPRESSION
     Route: 048
     Dates: start: 200511, end: 20120911
  2. LORAZEPAM [Concomitant]
  3. ATORVASTATIN CALCIUM [Concomitant]
  4. CLONAZEPAM [Concomitant]
  5. COLECALCIFEROL [Concomitant]
  6. CYANOCOBALAMIN [Concomitant]
  7. MULTIVITAMIN [Concomitant]
  8. ASPIRIN [Concomitant]
  9. ISOSORBIDE MONONITRATE [Concomitant]
  10. PANTOPRAZOLE [Concomitant]
  11. CLOPIDOGREL [Concomitant]

REACTIONS (1)
  - Death [Fatal]
